FAERS Safety Report 9068654 (Version 1)
Quarter: 2013Q1

REPORT INFORMATION
  Report Type: Spontaneous
  Country: US (occurrence: None)
  Receive Date: 20130212
  Receipt Date: 20130212
  Transmission Date: 20140127
  Serious: Yes (Other)
  Sender: FDA-Public Use
  Company Number: None

PATIENT
  Age: 36 Year
  Sex: Female
  Weight: 120.2 kg

DRUGS (4)
  1. CITALOPRAM [Suspect]
     Indication: ANXIETY
     Dosage: 1/2 TABLET  ONCE DAILY  PO
     Route: 048
     Dates: start: 20130122, end: 20130123
  2. CITALOPRAM [Suspect]
     Indication: HYPERTENSION
     Dosage: 1/2 TABLET  ONCE DAILY  PO
     Route: 048
     Dates: start: 20130122, end: 20130123
  3. CITALOPRAM [Suspect]
     Dosage: 1/2 TABLET  ONCE DAILY  PO
     Route: 048
     Dates: start: 20130122, end: 20130123
  4. CITALOPRAM [Suspect]
     Dosage: 1/2 TABLET  ONCE DAILY  PO
     Route: 048
     Dates: start: 20130122, end: 20130123

REACTIONS (2)
  - Hypersensitivity [None]
  - Renal pain [None]
